FAERS Safety Report 16960426 (Version 1)
Quarter: 2019Q4

REPORT INFORMATION
  Report Type: Spontaneous
  Country: SA (occurrence: SA)
  Receive Date: 20191025
  Receipt Date: 20191025
  Transmission Date: 20200122
  Serious: Yes (Hospitalization, Other)
  Sender: FDA-Public Use
  Company Number: SA-SUN PHARMACEUTICAL INDUSTRIES LTD-2019RR-225377

PATIENT
  Age: 31 Year
  Sex: Male

DRUGS (3)
  1. CEFTRIAXONE. [Suspect]
     Active Substance: CEFTRIAXONE
     Indication: BRUCELLOSIS
     Dosage: 2 GRAM, 1DOSE/12HOUR
     Route: 042
  2. SULPHAMETHOXAZOLE/TRIMETHOPRIM [Suspect]
     Active Substance: SULFAMETHOXAZOLE\TRIMETHOPRIM
     Indication: BRUCELLOSIS
     Dosage: UNK
     Route: 048
  3. CIPROFLOXACIN. [Suspect]
     Active Substance: CIPROFLOXACIN
     Indication: BRUCELLOSIS
     Dosage: 400 MILLIGRAM, 1DOSE/8HR
     Route: 042

REACTIONS (2)
  - Vomiting [Recovered/Resolved]
  - Pyrexia [Recovered/Resolved]
